FAERS Safety Report 17105282 (Version 1)
Quarter: 2019Q4

REPORT INFORMATION
  Report Type: Spontaneous
  Country: US (occurrence: US)
  Receive Date: 20191203
  Receipt Date: 20191203
  Transmission Date: 20200122
  Serious: No
  Sender: FDA-Public Use
  Company Number: US-SA-2019SA333713

PATIENT
  Sex: Male

DRUGS (2)
  1. LUNESTA [Suspect]
     Active Substance: ESZOPICLONE
     Dosage: ONCE EVERY NIGHT
  2. AMBIEN [Suspect]
     Active Substance: ZOLPIDEM TARTRATE
     Dosage: ONCE A NIGHT

REACTIONS (2)
  - Insomnia [Unknown]
  - Drug ineffective [Unknown]
